FAERS Safety Report 22523177 (Version 3)
Quarter: 2023Q2

REPORT INFORMATION
  Report Type: Report from Study
  Country: US (occurrence: US)
  Receive Date: 20230606
  Receipt Date: 20230623
  Transmission Date: 20230722
  Serious: No
  Sender: FDA-Public Use
  Company Number: US-002147023-NVSC2023US127165

PATIENT
  Sex: Male
  Weight: 73.469 kg

DRUGS (4)
  1. TREPROSTINIL [Suspect]
     Active Substance: TREPROSTINIL
     Indication: Pulmonary arterial hypertension
     Dosage: UNK,  50 NG/KG/MIN, (CONTINUOUS)
     Route: 042
     Dates: start: 20230526
  2. TREPROSTINIL [Suspect]
     Active Substance: TREPROSTINIL
     Dosage: UNK UNK, CONT, (20 NG/KG/MIN)
     Route: 042
     Dates: start: 20230526
  3. OPSUMIT [Concomitant]
     Active Substance: MACITENTAN
     Indication: Product used for unknown indication
     Dosage: UNK
     Route: 065
  4. TADALAFIL [Concomitant]
     Active Substance: TADALAFIL
     Indication: Product used for unknown indication
     Dosage: UNK
     Route: 065

REACTIONS (6)
  - Decreased appetite [Unknown]
  - Pain in jaw [Unknown]
  - Headache [Unknown]
  - Arthralgia [Unknown]
  - Nausea [Unknown]
  - Vomiting [Unknown]
